FAERS Safety Report 25300632 (Version 1)
Quarter: 2025Q2

REPORT INFORMATION
  Report Type: Report from Study
  Country: FR (occurrence: FR)
  Receive Date: 20250512
  Receipt Date: 20250512
  Transmission Date: 20250717
  Serious: Yes (Other)
  Sender: PFIZER
  Company Number: FR-GSK-FR2024GSK145366

PATIENT
  Age: 70 Year
  Sex: Female

DRUGS (6)
  1. CARBOPLATIN [Suspect]
     Active Substance: CARBOPLATIN
     Indication: Endometrial cancer recurrent
     Dates: start: 20240415
  2. CARBOPLATIN [Suspect]
     Active Substance: CARBOPLATIN
     Dates: start: 20240730, end: 20241219
  3. PACLITAXEL [Suspect]
     Active Substance: PACLITAXEL
     Indication: Endometrial cancer recurrent
     Dates: start: 20240415
  4. PACLITAXEL [Suspect]
     Active Substance: PACLITAXEL
     Dates: start: 20240730, end: 20241219
  5. DOSTARLIMAB [Suspect]
     Active Substance: DOSTARLIMAB
     Indication: Endometrial cancer recurrent
     Route: 042
     Dates: start: 20240415
  6. DOSTARLIMAB [Suspect]
     Active Substance: DOSTARLIMAB
     Route: 042
     Dates: end: 20241219

REACTIONS (3)
  - Endometrial cancer recurrent [Unknown]
  - Malignant neoplasm progression [Unknown]
  - Haematotoxicity [Unknown]
